FAERS Safety Report 7737389-1 (Version None)
Quarter: 2011Q3

REPORT INFORMATION
  Report Type: 
  Country: None (occurrence: None)
  Receive Date: 20110908
  Receipt Date: 20110902
  Transmission Date: 20111222
  Serious: Yes (Other)
  Sender: FDA-Public Use
  Company Number: US-AMGEN-USASP2011045184

PATIENT
  Age: 89 Year
  Sex: Female

DRUGS (4)
  1. PROLIA [Suspect]
     Indication: OSTEOPOROSIS POSTMENOPAUSAL
     Dosage: 60 MG, Q6MO
     Dates: start: 20110101
  2. CALCIUM CHANNEL BLOCKERS [Concomitant]
  3. BETA BLOCKING AGENTS [Concomitant]
  4. CALCIUM CARBONATE [Concomitant]

REACTIONS (3)
  - DIZZINESS [None]
  - CREATININE RENAL CLEARANCE ABNORMAL [None]
  - HYPOCALCAEMIA [None]
